FAERS Safety Report 9257698 (Version 1)
Quarter: 2013Q2

REPORT INFORMATION
  Report Type: Spontaneous
  Country: ES (occurrence: None)
  Receive Date: 20130422
  Receipt Date: 20130422
  Transmission Date: 20140414
  Serious: Yes (Hospitalization, Other)
  Sender: FDA-Public Use
  Company Number: FK201301238

PATIENT
  Age: 74 Year
  Sex: Male

DRUGS (4)
  1. AMIODARONE HCL [Suspect]
     Indication: ATRIAL FIBRILLATION
  2. BISOPROLOL (BISOPROLOL) [Concomitant]
  3. ACETYLSALICYLIC ACID (ACETYLSALICYLIC ACID) [Concomitant]
  4. ACENOCOUMAROL (ACENOCOUMAROL) [Concomitant]

REACTIONS (9)
  - Pulmonary alveolar haemorrhage [None]
  - Orthopnoea [None]
  - Condition aggravated [None]
  - Toxicity to various agents [None]
  - Dehydration [None]
  - Cachexia [None]
  - Hypocoagulable state [None]
  - Haemoptysis [None]
  - Anaemia [None]
